FAERS Safety Report 24694621 (Version 1)
Quarter: 2024Q4

REPORT INFORMATION
  Report Type: Report from Study
  Country: JP (occurrence: JP)
  Receive Date: 20241204
  Receipt Date: 20241204
  Transmission Date: 20250115
  Serious: Yes (Other)
  Sender: JOHNSON AND JOHNSON
  Company Number: JP-JNJFOC-20231057427

PATIENT

DRUGS (2)
  1. RISPERDAL [Suspect]
     Active Substance: RISPERIDONE
     Indication: Product used for unknown indication
     Dosage: DOSE UNKNOWN
     Route: 048
  2. RISPERDAL [Suspect]
     Active Substance: RISPERIDONE
     Dosage: DOSE UNKNOWN
     Route: 064

REACTIONS (11)
  - Low birth weight baby [Unknown]
  - Premature baby [Unknown]
  - Drug withdrawal syndrome neonatal [Unknown]
  - Infant irritability [Unknown]
  - Tremor neonatal [Unknown]
  - Hypertonia neonatal [Unknown]
  - Selective eating disorder [Unknown]
  - Crying [Unknown]
  - Sleep disorder [Unknown]
  - Somnolence neonatal [Unknown]
  - Foetal exposure during pregnancy [Unknown]
